FAERS Safety Report 7072000-7 (Version None)
Quarter: 2010Q4

REPORT INFORMATION
  Report Type: 
  Country: None (occurrence: None)
  Receive Date: 20101029
  Receipt Date: 20091118
  Transmission Date: 20110411
  Serious: No
  Sender: FDA-Public Use
  Company Number: A0817736A

PATIENT
  Age: 61 Year
  Sex: Female

DRUGS (7)
  1. ADVAIR DISKUS 100/50 [Suspect]
     Indication: ASTHMA
     Dosage: 1PUFF TWICE PER DAY
     Route: 055
     Dates: start: 20090801
  2. ADVAIR DISKUS 100/50 [Suspect]
     Route: 055
     Dates: start: 20090101, end: 20090101
  3. PROAIR HFA [Concomitant]
  4. MULTI-VITAMIN [Concomitant]
  5. VITAMIN D [Concomitant]
  6. ANTI-CHOLESTEROL MEDICATION [Concomitant]
  7. UNKNOWN MEDICATION [Concomitant]

REACTIONS (4)
  - ANXIETY [None]
  - DRUG INEFFECTIVE [None]
  - DYSPNOEA [None]
  - THERAPEUTIC RESPONSE DECREASED [None]
